FAERS Safety Report 16368365 (Version 2)
Quarter: 2019Q2

REPORT INFORMATION
  Report Type: Spontaneous
  Country: BR (occurrence: BR)
  Receive Date: 20190529
  Receipt Date: 20190603
  Transmission Date: 20190711
  Serious: Yes (Other)
  Sender: FDA-Public Use
  Company Number: BR-PFIZER INC-2019218607

PATIENT
  Sex: Female

DRUGS (1)
  1. FIBRASE [Suspect]
     Active Substance: CHLORAMPHENICOL
     Indication: DECUBITUS ULCER
     Dosage: UNK

REACTIONS (1)
  - Adverse event [Not Recovered/Not Resolved]
